FAERS Safety Report 4946524-X (Version None)
Quarter: 2006Q1

REPORT INFORMATION
  Report Type: 
  Country: None (occurrence: None)
  Receive Date: 20060317
  Receipt Date: 20060307
  Transmission Date: 20060701
  Serious: Yes (Death, Other)
  Sender: FDA-Public Use
  Company Number: NL-JNJFOC-20040305552

PATIENT
  Sex: Female

DRUGS (6)
  1. INFLIXIMAB [Suspect]
     Dosage: 20 MG/KG
     Route: 042
  2. ETANERCEPT [Suspect]
     Route: 050
  3. ETANERCEPT [Suspect]
     Route: 050
  4. PREDNISONE [Suspect]
  5. METHOTREXATE [Concomitant]
     Route: 050
  6. METHYLPREDNISOLONE [Concomitant]
     Route: 050

REACTIONS (13)
  - CARDIAC ARREST [None]
  - CATHETER RELATED INFECTION [None]
  - CUTANEOUS TUBERCULOSIS [None]
  - DIFFUSE ALVEOLAR DAMAGE [None]
  - ENTEROBACTER INFECTION [None]
  - ESCHERICHIA INFECTION [None]
  - JOINT TUBERCULOSIS [None]
  - LUNG INFECTION [None]
  - OPPORTUNISTIC INFECTION [None]
  - PNEUMONIA LIPOID [None]
  - PULMONARY EMBOLISM [None]
  - RESPIRATORY FAILURE [None]
  - SHOCK [None]
